FAERS Safety Report 7475936-8 (Version None)
Quarter: 2011Q2

REPORT INFORMATION
  Report Type: 
  Country: None (occurrence: None)
  Receive Date: 20110512
  Receipt Date: 20110509
  Transmission Date: 20111010
  Serious: Yes (Death)
  Sender: FDA-Public Use
  Company Number: PHEH2009US14642

PATIENT
  Sex: Female
  Weight: 95.692 kg

DRUGS (8)
  1. ASPIRIN [Concomitant]
     Route: 048
  2. EXJADE [Suspect]
     Indication: NEOPLASM
     Dosage: 2000 MG, QD
     Route: 048
     Dates: start: 20090519, end: 20090914
  3. ULTRAM [Concomitant]
     Dosage: 50 MG, PRN
     Route: 048
  4. ZANTAC [Concomitant]
     Dosage: 150 MG, BID
     Route: 048
  5. LORATADINE [Concomitant]
     Dosage: 10 MG, QD
     Route: 048
  6. COLACE [Concomitant]
     Dosage: UNK
  7. FLUCONASE [Concomitant]
  8. EXJADE [Suspect]
     Indication: IRON OVERLOAD

REACTIONS (3)
  - DEATH [None]
  - BLOOD BILIRUBIN INCREASED [None]
  - TRANSAMINASES INCREASED [None]
